FAERS Safety Report 9167951 (Version 1)
Quarter: 2013Q1

REPORT INFORMATION
  Report Type: Spontaneous
  Country: TR (occurrence: None)
  Receive Date: 20130307
  Receipt Date: 20130307
  Transmission Date: 20140127
  Serious: Yes (Hospitalization)
  Sender: FDA-Public Use
  Company Number: IMP_06593_2013

PATIENT
  Age: 14 Year
  Sex: Female

DRUGS (1)
  1. METFORMIN [Suspect]
     Indication: PRODUCT USED FOR UNKNOWN INDICATION
     Dosage: ([NOT THE PRESCRIBED AMOUNT, 45 GR (0.75 GR KG-1 BODY WEIGHT)])

REACTIONS (5)
  - Toxicity to various agents [None]
  - Lactic acidosis [None]
  - Suicide attempt [None]
  - Metabolic acidosis [None]
  - Blood glucose increased [None]
